FAERS Safety Report 7407026-4 (Version None)
Quarter: 2011Q2

REPORT INFORMATION
  Report Type: 
  Country: None (occurrence: None)
  Receive Date: 20110411
  Receipt Date: 20110216
  Transmission Date: 20111010
  Serious: Yes (Life-Threatening, Hospitalization, Disabling)
  Sender: FDA-Public Use
  Company Number: US-BAYER-200714849NA

PATIENT
  Age: 23 Year
  Sex: Female
  Weight: 60 kg

DRUGS (2)
  1. YAZ [Suspect]
     Indication: ORAL CONTRACEPTION
     Dosage: 1 TABLET
     Route: 048
     Dates: start: 20070725, end: 20070911
  2. ALCOHOL [Concomitant]

REACTIONS (12)
  - MEMORY IMPAIRMENT [None]
  - MYOCLONUS [None]
  - HYPOXIC-ISCHAEMIC ENCEPHALOPATHY [None]
  - VISUAL IMPAIRMENT [None]
  - VENTRICULAR FIBRILLATION [None]
  - CARDIAC ARREST [None]
  - PNEUMONIA ASPIRATION [None]
  - BALANCE DISORDER [None]
  - MOTOR DYSFUNCTION [None]
  - MUSCULAR WEAKNESS [None]
  - MUSCLE SPASTICITY [None]
  - CONVULSION [None]
